FAERS Safety Report 20531625 (Version 2)
Quarter: 2022Q1

REPORT INFORMATION
  Report Type: Spontaneous
  Country: JP (occurrence: None)
  Receive Date: 20220301
  Receipt Date: 20220304
  Transmission Date: 20220424
  Serious: Yes (Other)
  Sender: FDA-Public Use
  Company Number: 2021A899351

PATIENT
  Age: 68 Year
  Sex: Male

DRUGS (4)
  1. IMFINZI [Suspect]
     Active Substance: DURVALUMAB
     Indication: Non-small cell lung cancer
     Route: 041
     Dates: start: 20211104, end: 20211104
  2. CEFTRIAXONE SODIUM [Suspect]
     Active Substance: CEFTRIAXONE SODIUM
     Indication: Adrenal insufficiency
     Dosage: UNKNOWN
     Route: 065
     Dates: start: 20211110, end: 20211115
  3. ACETAMINOPHEN [Concomitant]
     Active Substance: ACETAMINOPHEN
     Route: 065
  4. FENTANYL [Concomitant]
     Active Substance: FENTANYL
     Route: 065

REACTIONS (4)
  - Pneumonitis [Unknown]
  - Hypotension [Recovering/Resolving]
  - Hepatic function abnormal [Recovering/Resolving]
  - Adrenal insufficiency [Unknown]

NARRATIVE: CASE EVENT DATE: 20211108
